FAERS Safety Report 20825688 (Version 1)
Quarter: 2022Q2

REPORT INFORMATION
  Report Type: Report from Study
  Country: US (occurrence: US)
  Receive Date: 20220513
  Receipt Date: 20220513
  Transmission Date: 20220721
  Serious: Yes (Death, Other)
  Sender: FDA-Public Use
  Company Number: US-BRISTOL-MYERS SQUIBB COMPANY-2022-039420

PATIENT
  Age: 92 Year
  Sex: Female
  Weight: 62.1 kg

DRUGS (23)
  1. AZACITIDINE [Suspect]
     Active Substance: AZACITIDINE
     Indication: Myelodysplastic syndrome
     Dosage: D1-5, D8-9
     Route: 058
     Dates: start: 20211122, end: 20220316
  2. VENETOCLAX [Suspect]
     Active Substance: VENETOCLAX
     Indication: Myelodysplastic syndrome
     Dosage: DAYS 1-14 OF EACH 28-DAY CYCLE
     Route: 048
     Dates: start: 20211122, end: 20220320
  3. LOSARTAN [Concomitant]
     Active Substance: LOSARTAN
     Indication: Hypertension
     Dosage: 1 IN 1 D
     Route: 048
  4. LOSARTAN [Concomitant]
     Active Substance: LOSARTAN
     Dosage: 1 IN 1 D
     Route: 048
     Dates: start: 2010
  5. SPIRIVA [Concomitant]
     Active Substance: TIOTROPIUM BROMIDE MONOHYDRATE
     Indication: Chronic obstructive pulmonary disease
     Dosage: 1 IN 1 D
  6. SPIRIVA [Concomitant]
     Active Substance: TIOTROPIUM BROMIDE MONOHYDRATE
     Dosage: 1 IN 1 D
     Dates: start: 2010
  7. COLACE [Concomitant]
     Active Substance: DOCUSATE SODIUM
     Indication: Constipation
     Dosage: 1 AS REQUIRED
     Route: 048
  8. COLACE [Concomitant]
     Active Substance: DOCUSATE SODIUM
     Dosage: 1 AS REQUIRED
     Route: 048
     Dates: start: 2016
  9. METOPROLOL SUCCINATE [Concomitant]
     Active Substance: METOPROLOL SUCCINATE
     Indication: Hypertension
     Dosage: 1 IN 1 D
     Route: 048
  10. METOPROLOL SUCCINATE [Concomitant]
     Active Substance: METOPROLOL SUCCINATE
     Dosage: 1 IN 1 D
     Route: 048
     Dates: start: 20211117
  11. FLUCONAZOLE [Concomitant]
     Active Substance: FLUCONAZOLE
     Indication: Antifungal prophylaxis
     Dosage: 1 IN 1 D
     Route: 048
  12. FLUCONAZOLE [Concomitant]
     Active Substance: FLUCONAZOLE
     Dosage: 1 IN 1 D
     Route: 048
     Dates: start: 20211122
  13. ALLOPURINOL [Concomitant]
     Active Substance: ALLOPURINOL
  14. ALLOPURINOL [Concomitant]
     Active Substance: ALLOPURINOL
     Indication: Prophylaxis
     Route: 048
     Dates: start: 20211122
  15. ELIQUIS [Concomitant]
     Active Substance: APIXABAN
     Indication: Atrial fibrillation
     Route: 048
     Dates: start: 2018
  16. FLONASE [Concomitant]
     Active Substance: FLUTICASONE PROPIONATE
     Indication: Sinus disorder
     Dosage: 1 AS REQUIRED
     Route: 045
  17. ACYCLOVIR [Concomitant]
     Active Substance: ACYCLOVIR
     Indication: Antiviral prophylaxis
     Dosage: 2 IN 1 D
     Route: 048
     Dates: start: 20211122
  18. ZOFRAN [Concomitant]
     Active Substance: ONDANSETRON HYDROCHLORIDE
     Indication: Nausea
     Dosage: 1 AS REQUIRED
     Route: 048
     Dates: start: 20211122
  19. SENNAKKOT [Concomitant]
     Indication: Constipation
     Dosage: 1 AS REQUIRED
     Route: 048
     Dates: start: 20211201
  20. MIRALAX [Concomitant]
     Active Substance: POLYETHYLENE GLYCOL 3350
     Indication: Constipation
     Dosage: 1 AS REQUIRED
     Route: 048
     Dates: start: 20211201
  21. MECLIZINE [Concomitant]
     Active Substance: MECLIZINE HYDROCHLORIDE
     Indication: Vertigo
     Dosage: 1 AS REQUIRED
     Route: 048
     Dates: start: 20211212
  22. CEFDINIR [Concomitant]
     Active Substance: CEFDINIR
     Indication: Antibiotic prophylaxis
     Route: 048
     Dates: start: 20211206
  23. IMODIUM [Concomitant]
     Active Substance: LOPERAMIDE HYDROCHLORIDE
     Indication: Diarrhoea
     Dosage: 1 AS REQUIRED
     Route: 048
     Dates: start: 20211125

REACTIONS (1)
  - Diverticular perforation [Fatal]

NARRATIVE: CASE EVENT DATE: 20220401
